FAERS Safety Report 11227252 (Version 2)
Quarter: 2017Q3

REPORT INFORMATION
  Report Type: Report from Study
  Country: BR (occurrence: BR)
  Receive Date: 20150630
  Receipt Date: 20170926
  Transmission Date: 20171127
  Serious: Yes (Life-Threatening, Other)
  Sender: FDA-Public Use
  Company Number: PHHY2015BR018376

PATIENT
  Sex: Female
  Weight: 75 kg

DRUGS (2)
  1. CALCIUM +D3 [Suspect]
     Active Substance: CALCIUM\CHOLECALCIFEROL
     Indication: OSTEOPOROSIS
     Dosage: 1 DF, QD
     Route: 065
     Dates: start: 201401, end: 201404
  2. ACLASTA [Suspect]
     Active Substance: ZOLEDRONIC ACID
     Indication: OSTEOPOROSIS
     Dosage: 1 DF, Q12MO
     Route: 042
     Dates: start: 20140113, end: 20140113

REACTIONS (15)
  - Osteoporosis [Unknown]
  - Spinal pain [Unknown]
  - Paraesthesia [Unknown]
  - Weight decreased [Unknown]
  - Abdominal distension [Unknown]
  - Intervertebral disc protrusion [Unknown]
  - Gallbladder pain [Unknown]
  - Pain in extremity [Unknown]
  - Cholelithiasis [Unknown]
  - Breast discomfort [Recovering/Resolving]
  - Nervousness [Unknown]
  - Drug ineffective [Unknown]
  - Apparent death [Unknown]
  - Pain [Unknown]
  - Malaise [Unknown]
